FAERS Safety Report 15402839 (Version 1)
Quarter: 2018Q3

REPORT INFORMATION
  Report Type: Spontaneous
  Country: US (occurrence: US)
  Receive Date: 20180917
  Receipt Date: 20180917
  Transmission Date: 20181010
  Serious: Yes (Hospitalization)
  Sender: FDA-Public Use
  Company Number: None

PATIENT
  Age: 78 Year
  Sex: Female

DRUGS (10)
  1. RECLAST [Concomitant]
     Active Substance: ZOLEDRONIC ACID
  2. ORENCIA [Suspect]
     Active Substance: ABATACEPT
     Indication: RHEUMATOID ARTHRITIS
     Dosage: ?          OTHER FREQUENCY:Q4WKS;?
     Route: 042
     Dates: start: 20150901
  3. CELEBREX [Concomitant]
     Active Substance: CELECOXIB
  4. FOLIC ACID. [Concomitant]
     Active Substance: FOLIC ACID
  5. VITAMIN D [Concomitant]
     Active Substance: CHOLECALCIFEROL
  6. METHOTREXATE. [Concomitant]
     Active Substance: METHOTREXATE
  7. CIMZIA [Concomitant]
     Active Substance: CERTOLIZUMAB PEGOL
  8. CALCIUM [Concomitant]
     Active Substance: CALCIUM
  9. CHLORDIAZEP [Concomitant]
  10. LIBRIUM [Concomitant]
     Active Substance: CHLORDIAZEPOXIDE HYDROCHLORIDE

REACTIONS (1)
  - Otoplasty [None]

NARRATIVE: CASE EVENT DATE: 20180814
